FAERS Safety Report 9901522 (Version 2)
Quarter: 2014Q1

REPORT INFORMATION
  Report Type: Spontaneous
  Country: US (occurrence: US)
  Receive Date: 20140217
  Receipt Date: 20140217
  Transmission Date: 20141002
  Serious: No
  Sender: FDA-Public Use
  Company Number: US-GILEAD-2011-0041578

PATIENT
  Age: 48 Year
  Sex: Female

DRUGS (2)
  1. LETAIRIS [Suspect]
     Indication: PRODUCT USED FOR UNKNOWN INDICATION
     Route: 048
     Dates: start: 20110607, end: 20110802
  2. REVATIO [Concomitant]

REACTIONS (12)
  - Photosensitivity reaction [Unknown]
  - Dizziness [Unknown]
  - Local swelling [Unknown]
  - Swelling face [Unknown]
  - Abdominal distension [Unknown]
  - Abdominal discomfort [Unknown]
  - Weight increased [Unknown]
  - Dyspnoea [Unknown]
  - Headache [Unknown]
  - Sinusitis [Unknown]
  - Swelling [Unknown]
  - Oedema [Unknown]
